FAERS Safety Report 10931046 (Version 1)
Quarter: 2015Q1

REPORT INFORMATION
  Report Type: Other
  Country: US (occurrence: US)
  Receive Date: 20150319
  Receipt Date: 20150319
  Transmission Date: 20150721
  Serious: Yes (Hospitalization, Other)
  Sender: FDA-Public Use
  Company Number: US-GSKPPD-2014GSK002270

PATIENT
  Age: 62 Year
  Sex: Male

DRUGS (9)
  1. BUMEX [Concomitant]
     Active Substance: BUMETANIDE
     Dates: start: 2010
  2. COREG [Concomitant]
     Active Substance: CARVEDILOL
     Dates: start: 2010
  3. ASPIRIN. [Concomitant]
     Active Substance: ASPIRIN
     Dates: start: 2010
  4. ZESTRIL [Concomitant]
     Active Substance: LISINOPRIL
  5. PLAVIX [Concomitant]
     Active Substance: CLOPIDOGREL BISULFATE
  6. ALDACTONE [Concomitant]
     Active Substance: SPIRONOLACTONE
  7. LASIX [Concomitant]
     Active Substance: FUROSEMIDE
  8. AVANDIA [Suspect]
     Active Substance: ROSIGLITAZONE MALEATE
     Indication: DIABETES MELLITUS
     Route: 048
     Dates: start: 2006
  9. METOPROLOL [Concomitant]
     Active Substance: METOPROLOL

REACTIONS (1)
  - Cardiac failure congestive [Recovered/Resolved]

NARRATIVE: CASE EVENT DATE: 20051225
